FAERS Safety Report 20552828 (Version 1)
Quarter: 2022Q1

REPORT INFORMATION
  Report Type: Spontaneous
  Country: US (occurrence: None)
  Receive Date: 20220303
  Receipt Date: 20220303
  Transmission Date: 20220423
  Serious: No
  Sender: FDA-Public Use
  Company Number: None

PATIENT
  Age: 69 Year
  Sex: Female
  Weight: 81 kg

DRUGS (1)
  1. VENOFER [Suspect]
     Active Substance: IRON SUCROSE
     Indication: Anaemia
     Dosage: OTHER FREQUENCY : 5 DOSES, Q 3 WEEKS;?
     Route: 041
     Dates: start: 20220303, end: 20220303

REACTIONS (3)
  - Wrong technique in device usage process [None]
  - Incorrect dose administered [None]
  - Refusal of treatment by patient [None]

NARRATIVE: CASE EVENT DATE: 20220303
